FAERS Safety Report 8575029-2 (Version None)
Quarter: 2012Q2

REPORT INFORMATION
  Report Type: 
  Country: None (occurrence: None)
  Receive Date: 20120423
  Receipt Date: 20090428
  Transmission Date: 20120825
  Serious: Yes (Death)
  Sender: FDA-Public Use
  Company Number: PHEH2007US02769

PATIENT
  Age: 50 Year
  Sex: Female

DRUGS (2)
  1. EXJADE [Suspect]
     Indication: IRON OVERLOAD
     Dosage: 2500 , QD, ORAL
     Route: 048
     Dates: start: 20061129
  2. EXJADE [Suspect]
     Indication: MYELODYSPLASTIC SYNDROME
     Dosage: 2500 , QD, ORAL
     Route: 048
     Dates: start: 20061129

REACTIONS (1)
  - NEOPLASM MALIGNANT [None]
